FAERS Safety Report 13590847 (Version 2)
Quarter: 2017Q4

REPORT INFORMATION
  Report Type: Spontaneous
  Country: CN (occurrence: CN)
  Receive Date: 20170530
  Receipt Date: 20171107
  Transmission Date: 20180320
  Serious: Yes (Life-Threatening, Other)
  Sender: FDA-Public Use
  Company Number: CN-SUN PHARMACEUTICAL INDUSTRIES LTD-2017R1-141815

PATIENT
  Age: 62 Year
  Sex: Female

DRUGS (9)
  1. CISPLATIN. [Suspect]
     Active Substance: CISPLATIN
     Indication: MALIGNANT PERITONEAL NEOPLASM
     Dosage: 60 MG/M2, CYCLICAL
     Route: 042
  2. CARBOPLATIN. [Concomitant]
     Active Substance: CARBOPLATIN
     Dosage: 7 CYCLES AUC 6; EVERY 3 WEEKS
     Route: 033
  3. CARBOPLATIN. [Concomitant]
     Active Substance: CARBOPLATIN
     Indication: MALIGNANT PERITONEAL NEOPLASM
     Dosage: CYCLICAL AUC 6
     Route: 033
  4. MITOMYCIN. [Concomitant]
     Active Substance: MITOMYCIN
     Indication: MALIGNANT PERITONEAL NEOPLASM
     Dosage: UNK
     Route: 041
  5. DOCETAXEL. [Suspect]
     Active Substance: DOCETAXEL
     Indication: MALIGNANT PERITONEAL NEOPLASM
     Dosage: 60 MG/M2, 7 CYCLES (EVERY 3 WEEKS)
     Route: 042
  6. PACLITAXEL. [Concomitant]
     Active Substance: PACLITAXEL
     Indication: MALIGNANT PERITONEAL NEOPLASM
     Dosage: 80 MG/M2, CYCLICAL (ON THE THIRD POSTOPERATIVE DAY)
     Route: 042
  7. DOCETAXEL. [Suspect]
     Active Substance: DOCETAXEL
     Indication: MALIGNANT PERITONEAL NEOPLASM
     Dosage: 80 MG/M2 CYCLICAL
     Route: 033
  8. CISPLATIN. [Suspect]
     Active Substance: CISPLATIN
     Indication: MALIGNANT PERITONEAL NEOPLASM
     Dosage: 120 MG CONTINUOUSLY PERFUSED WITH 12,000 ML NORMAL SALINE AT 42 DEGREE C IN 90 MIN
     Route: 041
  9. SALINE [Concomitant]
     Active Substance: SODIUM CHLORIDE
     Indication: MALIGNANT PERITONEAL NEOPLASM
     Dosage: 12000 ML
     Route: 041

REACTIONS (2)
  - Bone marrow failure [Recovered/Resolved]
  - Gastrointestinal disorder [Recovered/Resolved]
